FAERS Safety Report 10159676 (Version 1)
Quarter: 2014Q2

REPORT INFORMATION
  Report Type: Spontaneous
  Country: US (occurrence: US)
  Receive Date: 20140508
  Receipt Date: 20140508
  Transmission Date: 20141212
  Serious: No
  Sender: FDA-Public Use
  Company Number: US-GLAXOSMITHKLINE-A1020967A

PATIENT
  Age: 56 Year
  Sex: Female

DRUGS (13)
  1. TYKERB [Suspect]
     Indication: BRAIN NEOPLASM
     Dosage: 5TAB AT NIGHT
     Route: 048
     Dates: start: 20130416
  2. DECADRON [Concomitant]
  3. METFORMIN [Concomitant]
  4. COMPAZINE [Concomitant]
  5. ZOFRAN [Concomitant]
  6. OXYCODONE [Concomitant]
  7. OXYCONTIN [Concomitant]
  8. FLUOXETINE [Concomitant]
  9. ATORVASTATIN [Concomitant]
  10. KLONOPIN [Concomitant]
  11. RANITIDINE [Concomitant]
  12. ASPIRIN [Concomitant]
  13. METOPROLOL [Concomitant]

REACTIONS (4)
  - Nausea [Not Recovered/Not Resolved]
  - Dysgeusia [Unknown]
  - Decreased appetite [Unknown]
  - Diarrhoea [Unknown]
